FAERS Safety Report 7670226-2 (Version None)
Quarter: 2011Q3

REPORT INFORMATION
  Report Type: 
  Country: None (occurrence: None)
  Receive Date: 20110808
  Receipt Date: 20110729
  Transmission Date: 20111222
  Serious: Yes (Other)
  Sender: FDA-Public Use
  Company Number: US-AMGEN-USASP2011033123

PATIENT
  Sex: Female

DRUGS (6)
  1. SYNTHROID [Concomitant]
     Dosage: 75 A?G, UNK
     Dates: start: 20070321, end: 20110729
  2. ASPIRIN [Concomitant]
     Dosage: 81 MG, UNK
     Dates: start: 20100210, end: 20110729
  3. ANTARA (MICRONIZED) [Concomitant]
     Dosage: UNK
     Dates: start: 20070321, end: 20110729
  4. ALDARA [Concomitant]
  5. CALCIUM WITH VITAMIN D             /00944201/ [Concomitant]
  6. XGEVA [Suspect]
     Indication: OSTEOPOROSIS POSTMENOPAUSAL
     Dosage: 120 MG, UNK
     Route: 042
     Dates: start: 20110628, end: 20110628

REACTIONS (2)
  - INCORRECT ROUTE OF DRUG ADMINISTRATION [None]
  - WRONG DRUG ADMINISTERED [None]
